FAERS Safety Report 10574168 (Version 1)
Quarter: 2014Q4

REPORT INFORMATION
  Report Type: Spontaneous
  Country: US (occurrence: US)
  Receive Date: 20141110
  Receipt Date: 20141110
  Transmission Date: 20150529
  Serious: Yes (Other)
  Sender: FDA-Public Use
  Company Number: US-BRISTOL-MYERS SQUIBB COMPANY-21585138

PATIENT
  Age: 81 Year
  Sex: Male

DRUGS (15)
  1. LISINOPRIL. [Concomitant]
     Active Substance: LISINOPRIL
  2. ATORVASTATIN [Concomitant]
     Active Substance: ATORVASTATIN
  3. LANTUS [Concomitant]
     Active Substance: INSULIN GLARGINE
  4. SPIRIVA [Concomitant]
     Active Substance: TIOTROPIUM BROMIDE MONOHYDRATE
  5. SYMBICORT [Concomitant]
     Active Substance: BUDESONIDE\FORMOTEROL FUMARATE DIHYDRATE
  6. CELEXA [Concomitant]
     Active Substance: CITALOPRAM HYDROBROMIDE
  7. OXYCODONE [Concomitant]
     Active Substance: OXYCODONE
  8. TAMSULOSIN [Concomitant]
     Active Substance: TAMSULOSIN
  9. WARFARIN SODIUM. [Suspect]
     Active Substance: WARFARIN SODIUM
  10. GLIPIZIDE. [Concomitant]
     Active Substance: GLIPIZIDE
  11. AMIODARONE [Concomitant]
     Active Substance: AMIODARONE
  12. ALBUTEROL. [Concomitant]
     Active Substance: ALBUTEROL
  13. LASIX [Concomitant]
     Active Substance: FUROSEMIDE
  14. WARFARIN [Concomitant]
     Active Substance: WARFARIN
  15. LIDODERM [Concomitant]
     Active Substance: LIDOCAINE

REACTIONS (3)
  - Confusional state [Unknown]
  - Memory impairment [Unknown]
  - Cerebrovascular accident [Unknown]
